FAERS Safety Report 6820168-7 (Version None)
Quarter: 2010Q3

REPORT INFORMATION
  Report Type: 
  Country: None (occurrence: None)
  Receive Date: 20100707
  Receipt Date: 20100701
  Transmission Date: 20110219
  Serious: Yes (Hospitalization, Other)
  Sender: FDA-Public Use
  Company Number: US-MERCK-0902USA01620

PATIENT
  Age: 46 Year
  Sex: Female
  Weight: 75 kg

DRUGS (5)
  1. FOSAMAX [Suspect]
     Indication: OSTEOPOROSIS
     Route: 048
     Dates: start: 19990101, end: 20010101
  2. FOSAMAX [Suspect]
     Route: 048
     Dates: start: 20011105, end: 20070101
  3. FOSAMAX [Suspect]
     Indication: OSTEOPENIA
     Route: 048
     Dates: start: 19990101, end: 20010101
  4. FOSAMAX [Suspect]
     Route: 048
     Dates: start: 20011105, end: 20070101
  5. CALCIUM (UNSPECIFIED) [Concomitant]
     Indication: OSTEOPOROSIS
     Route: 065

REACTIONS (50)
  - ABSCESS [None]
  - ACTINIC KERATOSIS [None]
  - ADVERSE DRUG REACTION [None]
  - ALOPECIA [None]
  - ANAL ABSCESS [None]
  - ANKLE FRACTURE [None]
  - ANXIETY [None]
  - ARTHRALGIA [None]
  - CARDIAC DISORDER [None]
  - CARDIAC FAILURE CONGESTIVE [None]
  - CEREBROVASCULAR ACCIDENT [None]
  - CHOLECYSTITIS CHRONIC [None]
  - CHRONIC OBSTRUCTIVE PULMONARY DISEASE [None]
  - COCCYDYNIA [None]
  - DENTAL CARIES [None]
  - DENTAL FISTULA [None]
  - DEPRESSION [None]
  - DIABETIC NEUROPATHY [None]
  - DRUG INEFFECTIVE [None]
  - DRY MOUTH [None]
  - DYSPHAGIA [None]
  - FALL [None]
  - FATIGUE [None]
  - GINGIVAL DISORDER [None]
  - HALLUCINATION [None]
  - HEADACHE [None]
  - LIPOMA [None]
  - LOOSE TOOTH [None]
  - LUNG NEOPLASM [None]
  - ONYCHOMYCOSIS [None]
  - OSTEOARTHRITIS [None]
  - OSTEOMYELITIS [None]
  - OSTEONECROSIS OF JAW [None]
  - OSTEOPENIA [None]
  - PAIN OF SKIN [None]
  - PELVIC ABSCESS [None]
  - PERIPHERAL VASCULAR DISORDER [None]
  - PILONIDAL CYST [None]
  - PITUITARY TUMOUR BENIGN [None]
  - PITUITARY-DEPENDENT CUSHING'S SYNDROME [None]
  - RECTAL ABSCESS [None]
  - RESPIRATORY FAILURE [None]
  - SCAR [None]
  - SKIN FIBROSIS [None]
  - SPINAL FRACTURE [None]
  - SPINAL OSTEOARTHRITIS [None]
  - STASIS DERMATITIS [None]
  - SUICIDE ATTEMPT [None]
  - URINARY TRACT INFECTION [None]
  - VISUAL IMPAIRMENT [None]
